FAERS Safety Report 16769742 (Version 2)
Quarter: 2019Q4

REPORT INFORMATION
  Report Type: Report from Study
  Country: None (occurrence: AU)
  Receive Date: 20190904
  Receipt Date: 20191107
  Transmission Date: 20200122
  Serious: Yes (Other)
  Sender: FDA-Public Use
  Company Number: AU-ABBVIE-19K-008-2903263-00

PATIENT
  Age: 63 Year
  Sex: Male

DRUGS (3)
  1. METHOTREXATE. [Concomitant]
     Active Substance: METHOTREXATE
     Indication: PRODUCT USED FOR UNKNOWN INDICATION
     Dates: end: 2018
  2. HUMIRA [Suspect]
     Active Substance: ADALIMUMAB
     Indication: CROHN^S DISEASE
     Route: 058
     Dates: start: 20140310
  3. METHOTREXATE. [Concomitant]
     Active Substance: METHOTREXATE

REACTIONS (13)
  - Suicidal ideation [Unknown]
  - Crohn^s disease [Not Recovered/Not Resolved]
  - Burning sensation [Unknown]
  - Back pain [Unknown]
  - Abdominal pain [Unknown]
  - Haemorrhage [Not Recovered/Not Resolved]
  - Feeling abnormal [Unknown]
  - Impaired work ability [Not Recovered/Not Resolved]
  - Frequent bowel movements [Unknown]
  - Fatigue [Not Recovered/Not Resolved]
  - Malaise [Unknown]
  - Drug ineffective [Not Recovered/Not Resolved]
  - Diarrhoea [Not Recovered/Not Resolved]

NARRATIVE: CASE EVENT DATE: 20190827
